FAERS Safety Report 25250541 (Version 1)
Quarter: 2025Q2

REPORT INFORMATION
  Report Type: Spontaneous
  Country: CN (occurrence: CN)
  Receive Date: 20250429
  Receipt Date: 20250429
  Transmission Date: 20250716
  Serious: Yes (Other)
  Sender: NOVARTIS
  Company Number: CN-002147023-NVSC2025CN065272

PATIENT
  Age: 15 Year
  Sex: Female
  Weight: 68 kg

DRUGS (5)
  1. TEGRETOL [Suspect]
     Active Substance: CARBAMAZEPINE
     Indication: Epilepsy
     Dosage: 400 MG, TID
     Route: 045
     Dates: start: 20250323
  2. LAMICTAL [Suspect]
     Active Substance: LAMOTRIGINE
     Indication: Epilepsy
     Dosage: 300.000 MG, BID
     Route: 045
     Dates: start: 20250323
  3. VIMPAT [Suspect]
     Active Substance: LACOSAMIDE
     Indication: Epilepsy
     Dosage: 200.000 MG, BID
     Route: 045
     Dates: start: 20250323
  4. LACOSAMIDE [Suspect]
     Active Substance: LACOSAMIDE
     Indication: Epilepsy
     Dosage: 0.200 G, QD
     Route: 041
     Dates: start: 20250330
  5. SODIUM CHLORIDE [Concomitant]
     Active Substance: SODIUM CHLORIDE
     Indication: Product used for unknown indication
     Dosage: 30 ML, BID
     Route: 041
     Dates: start: 20250330

REACTIONS (2)
  - Hyponatraemia [Recovering/Resolving]
  - Off label use [Unknown]

NARRATIVE: CASE EVENT DATE: 20250330
